FAERS Safety Report 5987888-8 (Version None)
Quarter: 2008Q4

REPORT INFORMATION
  Report Type: 
  Country: None (occurrence: None)
  Receive Date: 20081209
  Receipt Date: 20080619
  Transmission Date: 20090506
  Serious: No
  Sender: FDA-Public Use
  Company Number: US-TYCO HEALTHCARE/MALLINCKRODT-T200701605

PATIENT

DRUGS (20)
  1. ULTRA-TECHNEKOW [Suspect]
     Indication: CARDIAC STRESS TEST
     Dosage: 9 MCI, SINGLE (REST STUDY)
     Route: 042
     Dates: start: 20070227, end: 20070227
  2. ULTRA-TECHNEKOW [Suspect]
     Dosage: 26.5 MCI (STRESS STUDY)
     Route: 042
     Dates: start: 20070227, end: 20070227
  3. CARDIOLITE [Suspect]
     Indication: CARDIAC STRESS TEST
     Dosage: REST STUDY, SINGLE
     Route: 042
     Dates: start: 20070227, end: 20070227
  4. CARDIOLITE [Suspect]
     Dosage: STRESS STUDY, SINGLE
     Route: 042
     Dates: start: 20070227, end: 20070227
  5. PERSANTINE [Suspect]
     Indication: CARDIAC STRESS TEST
     Dosage: 53 MG, SINGLE
     Route: 042
     Dates: start: 20070227, end: 20070227
  6. AMINOPHYLLINE [Suspect]
     Indication: CARDIAC STRESS TEST
     Dosage: 200 MG, SINGLE
     Route: 042
     Dates: start: 20070227, end: 20070227
  7. METFORMIN HCL [Concomitant]
     Indication: DIABETES MELLITUS
     Dosage: 1000 MG, BID
     Route: 048
  8. SERTRALINE [Concomitant]
     Dosage: 150 MG, QD
     Route: 048
  9. SIMVASTATIN [Concomitant]
     Indication: BLOOD CHOLESTEROL INCREASED
     Dosage: 40 MG, QD
     Route: 048
  10. FUROSEMIDE [Concomitant]
     Indication: DIURETIC THERAPY
     Dosage: 40 MG, QD
     Route: 048
  11. ALLOPURINOL [Concomitant]
     Indication: GOUT
     Dosage: 300 MG, QD
     Route: 048
  12. LISINOPRIL [Concomitant]
     Indication: BLOOD PRESSURE MANAGEMENT
     Dosage: 20 MG, QD
     Route: 048
  13. OXYBUTYNIN CHLORIDE [Concomitant]
     Indication: RENAL DISORDER
     Dosage: 5 MG, QD
     Route: 048
  14. PIROXICAM [Concomitant]
     Indication: PAIN
     Dosage: 20 MG, QD
     Route: 048
  15. GLIPIZIDE [Concomitant]
     Indication: DIABETES MELLITUS
     Dosage: 5 MG, QD
     Route: 048
  16. GEMFIBROZIL [Concomitant]
     Dosage: 600 MG, BID
     Route: 048
  17. GABAPENTIN [Concomitant]
     Indication: DIABETIC NEUROPATHY
     Dosage: 600 MG, TID
     Route: 048
  18. COREG [Concomitant]
     Dosage: 12.5 MG, QD
     Route: 048
  19. DIGOXIN [Concomitant]
     Dosage: .25 MG, QD
     Route: 048
  20. ASPIRIN [Concomitant]
     Dosage: 325 MG, QD
     Route: 048

REACTIONS (8)
  - CHILLS [None]
  - COUGH [None]
  - DYSPNOEA [None]
  - KIDNEY INFECTION [None]
  - NAUSEA [None]
  - PAIN IN EXTREMITY [None]
  - PYREXIA [None]
  - VOMITING [None]
